FAERS Safety Report 5943622-9 (Version None)
Quarter: 2008Q4

REPORT INFORMATION
  Report Type: 
  Country: None (occurrence: None)
  Receive Date: 20081106
  Receipt Date: 20081028
  Transmission Date: 20090506
  Serious: Yes (Other)
  Sender: FDA-Public Use
  Company Number: JP-PFIZER INC-2008091691

PATIENT
  Age: 66 Year
  Sex: Female

DRUGS (3)
  1. CHAMPIX [Suspect]
     Dosage: DAILY DOSE:2MG
     Route: 048
     Dates: start: 20080910, end: 20080925
  2. MEVALOTIN [Concomitant]
     Route: 048
     Dates: start: 20060830, end: 20080925
  3. MYSLEE [Concomitant]
     Route: 048
     Dates: start: 20060929, end: 20080925

REACTIONS (1)
  - ERYTHEMA MULTIFORME [None]
